FAERS Safety Report 9713649 (Version 2)
Quarter: 2013Q4

REPORT INFORMATION
  Report Type: Spontaneous
  Country: US (occurrence: US)
  Receive Date: 20131126
  Receipt Date: 20131209
  Transmission Date: 20140711
  Serious: No
  Sender: FDA-Public Use
  Company Number: US-VERTEX PHARMACEUTICALS INC-2013-011336

PATIENT
  Age: 47 Year
  Sex: Male
  Weight: 93 kg

DRUGS (4)
  1. INCIVEK [Suspect]
     Indication: HEPATITIS C
     Dosage: 750 MG, TID
     Route: 048
     Dates: start: 20131115
  2. RIBAVIRIN [Suspect]
     Indication: HEPATITIS C
     Dosage: 2 DF, BID
     Dates: start: 20131115
  3. RIBAVIRIN [Suspect]
     Dosage: 1 DF, BID
  4. PEGASYS [Suspect]
     Indication: HEPATITIS C
     Dosage: 1 INJECTION, QW
     Dates: start: 20131115

REACTIONS (6)
  - Drug dose omission [Unknown]
  - Confusional state [Not Recovered/Not Resolved]
  - Anger [Not Recovered/Not Resolved]
  - Influenza like illness [Not Recovered/Not Resolved]
  - Vomiting [Not Recovered/Not Resolved]
  - Nausea [Not Recovered/Not Resolved]
